FAERS Safety Report 4502128-4 (Version None)
Quarter: 2004Q4

REPORT INFORMATION
  Report Type: 
  Country: None (occurrence: None)
  Receive Date: 20041109
  Receipt Date: 20041025
  Transmission Date: 20050328
  Serious: Yes (Life-Threatening, Other)
  Sender: FDA-Public Use
  Company Number: DE_040914223

PATIENT
  Age: 61 Year
  Sex: Male
  Weight: 70 kg

DRUGS (8)
  1. XIGRIS [Suspect]
     Indication: ORGAN FAILURE
     Dosage: 24 UG/KG/HR
     Dates: start: 20040801, end: 20040804
  2. XIGRIS [Suspect]
     Indication: SEPSIS
     Dosage: 24 UG/KG/HR
     Dates: start: 20040801, end: 20040804
  3. PROPOFOL [Concomitant]
  4. CATECHOLAMINES [Concomitant]
  5. MERONEM (MEROPENEM) [Concomitant]
  6. AMPICILLIN [Concomitant]
  7. NOREPINEPHRINE BITARTRATE [Concomitant]
  8. DOBUTAMINE [Concomitant]

REACTIONS (13)
  - CARDIAC INDEX DECREASED [None]
  - CARDIOMYOPATHY [None]
  - CRUSH SYNDROME [None]
  - DIALYSIS [None]
  - EJECTION FRACTION DECREASED [None]
  - LABORATORY TEST ABNORMAL [None]
  - OLIGURIA [None]
  - POLYURIA [None]
  - RHABDOMYOLYSIS [None]
  - SEPTIC SHOCK [None]
  - TROPONIN T INCREASED [None]
  - VASCULAR RESISTANCE SYSTEMIC INCREASED [None]
  - VOLUME BLOOD INCREASED [None]
